FAERS Safety Report 6901937-1 (Version None)
Quarter: 2010Q3

REPORT INFORMATION
  Report Type: 
  Country: None (occurrence: None)
  Receive Date: 20100803
  Receipt Date: 20080407
  Transmission Date: 20110219
  Serious: No
  Sender: FDA-Public Use
  Company Number: US-PFIZER INC-2008031538

PATIENT
  Sex: Female
  Weight: 62.3 kg

DRUGS (7)
  1. LYRICA [Suspect]
     Indication: TRIGEMINAL NEURALGIA
     Dates: start: 20080301
  2. WELLBUTRIN [Concomitant]
  3. ALLEGRA [Concomitant]
  4. LASIX [Concomitant]
  5. DRUG, UNSPECIFIED [Concomitant]
  6. GARLIC [Concomitant]
  7. DEHYDROEPIANDROSTERONE [Concomitant]

REACTIONS (5)
  - ABDOMINAL DISTENSION [None]
  - FEELING ABNORMAL [None]
  - PAIN [None]
  - SPEECH DISORDER [None]
  - WEIGHT INCREASED [None]
